FAERS Safety Report 10444005 (Version 1)
Quarter: 2014Q3

REPORT INFORMATION
  Report Type: Spontaneous
  Country: US (occurrence: US)
  Receive Date: 20140910
  Receipt Date: 20140910
  Transmission Date: 20150326
  Serious: Yes (Hospitalization, Other)
  Sender: FDA-Public Use
  Company Number: US-TARO-2014TAR00086

PATIENT
  Age: 63 Year
  Sex: Male
  Weight: 89 kg

DRUGS (7)
  1. PREDNISONE. [Concomitant]
     Active Substance: PREDNISONE
  2. WARFARIN [Suspect]
     Active Substance: WARFARIN
     Dosage: 2 MG, EVERY 48 HOURS
     Dates: start: 20130127
  3. WARFARIN [Suspect]
     Active Substance: WARFARIN
     Dosage: 2 MG, 1X/DAY
     Dates: start: 201406, end: 20140623
  4. WARFARIN [Suspect]
     Active Substance: WARFARIN
     Dosage: 5 MG, EVERY 48 HOURS
     Dates: end: 201406
  5. WARFARIN [Suspect]
     Active Substance: WARFARIN
     Dosage: 3 MG, 1X/DAY
     Dates: start: 20140624
  6. WARFARIN [Suspect]
     Active Substance: WARFARIN
     Dosage: 4 MG, EVERY 48 HOURS
     Dates: end: 201406
  7. WARFARIN [Suspect]
     Active Substance: WARFARIN
     Indication: HEART VALVE REPLACEMENT
     Dosage: 3 MG, EVERY 48 HOURS
     Dates: start: 20130127

REACTIONS (5)
  - Toxicity to various agents [Unknown]
  - Haemoglobin decreased [Unknown]
  - International normalised ratio increased [None]
  - Haematuria [None]
  - Gastrointestinal haemorrhage [Recovered/Resolved]

NARRATIVE: CASE EVENT DATE: 201302
